FAERS Safety Report 7621394-X (Version None)
Quarter: 2011Q3

REPORT INFORMATION
  Report Type: 
  Country: None (occurrence: None)
  Receive Date: 20110719
  Receipt Date: 20110714
  Transmission Date: 20111222
  Serious: Yes (Death, Hospitalization, Disabling, Other)
  Sender: FDA-Public Use
  Company Number: IT-PFIZER INC-2011160253

PATIENT
  Age: 74 Year
  Sex: Male
  Weight: 75 kg

DRUGS (3)
  1. BLINDED THERAPY [Suspect]
     Indication: HEPATIC NEOPLASM MALIGNANT
     Dosage: 800 MG, DAILY DOSE
     Route: 048
     Dates: start: 20091204, end: 20091217
  2. DOXORUBICIN HCL [Suspect]
     Indication: HEPATIC NEOPLASM MALIGNANT
     Route: 013
  3. BLINDED THERAPY [Suspect]
     Dosage: 400 MG, DAILY DOSE
     Route: 048
     Dates: start: 20091217, end: 20091222

REACTIONS (3)
  - HEPATIC FUNCTION ABNORMAL [None]
  - CHRONIC HEPATIC FAILURE [None]
  - ASCITES [None]
